FAERS Safety Report 8513177-3 (Version None)
Quarter: 2012Q3

REPORT INFORMATION
  Report Type: 
  Country: None (occurrence: None)
  Receive Date: 20120716
  Receipt Date: 20120710
  Transmission Date: 20120928
  Serious: Yes (Other)
  Sender: FDA-Public Use
  Company Number: US-PFIZER INC-2012165812

PATIENT
  Sex: Female
  Weight: 79.365 kg

DRUGS (5)
  1. VIAGRA [Suspect]
     Indication: BLADDER DISORDER
  2. VESICARE [Concomitant]
     Indication: MICTURITION DISORDER
     Dosage: UNK
  3. VIAGRA [Suspect]
     Indication: OFF LABEL USE
     Dosage: 100 MG, 1X/DAY
     Route: 048
  4. VIAGRA [Suspect]
     Indication: BLADDER PROLAPSE
  5. ELMIRON [Concomitant]
     Indication: BLADDER DISORDER
     Dosage: UNK

REACTIONS (1)
  - BREAST CANCER FEMALE [None]
